FAERS Safety Report 24376487 (Version 1)
Quarter: 2024Q3

REPORT INFORMATION
  Report Type: Spontaneous
  Country: CN (occurrence: CN)
  Receive Date: 20240930
  Receipt Date: 20240930
  Transmission Date: 20241017
  Serious: Yes (Other)
  Sender: BAYER
  Company Number: CN-BAYER-2024A137475

PATIENT
  Age: 43 Year
  Sex: Female
  Weight: 55 kg

DRUGS (2)
  1. AVELOX [Suspect]
     Active Substance: MOXIFLOXACIN HYDROCHLORIDE
     Indication: Antiinflammatory therapy
     Dosage: 0.4 G, QD
     Route: 048
     Dates: start: 20240911, end: 20240913
  2. AVELOX [Suspect]
     Active Substance: MOXIFLOXACIN HYDROCHLORIDE
     Indication: Antibiotic therapy
     Dosage: 0.4 G, QD
     Route: 048
     Dates: start: 20240915, end: 20240917

REACTIONS (10)
  - Insomnia [Recovered/Resolved]
  - Headache [Recovered/Resolved]
  - Bradycardia [Recovered/Resolved]
  - Panic reaction [Recovered/Resolved]
  - Hallucination [Recovered/Resolved]
  - Palpitations [Recovered/Resolved]
  - Vision blurred [Recovered/Resolved]
  - Asthenia [Recovered/Resolved]
  - Arthralgia [Recovered/Resolved]
  - Myalgia [Recovered/Resolved]

NARRATIVE: CASE EVENT DATE: 20240901
